FAERS Safety Report 12899541 (Version 1)
Quarter: 2016Q4

REPORT INFORMATION
  Report Type: Spontaneous
  Country: US (occurrence: US)
  Receive Date: 20161029
  Receipt Date: 20161029
  Transmission Date: 20170207
  Serious: No
  Sender: FDA-Public Use
  Company Number: None

PATIENT
  Age: 54 Year
  Sex: Female
  Weight: 78.75 kg

DRUGS (10)
  1. CPAP [Concomitant]
     Active Substance: DEVICE
  2. LIMBREL [Concomitant]
     Active Substance: FLAVOCOXID
  3. ARTIFICIAL TEARS AND LUBRICANT [Concomitant]
  4. XIIDRA [Suspect]
     Active Substance: LIFITEGRAST
     Indication: DRY EYE
     Dosage: ?          QUANTITY:60 14;?
     Route: 047
     Dates: start: 20161016, end: 20161023
  5. PROVIGIL [Concomitant]
     Active Substance: MODAFINIL
  6. VITAMIN D3 [Concomitant]
     Active Substance: CHOLECALCIFEROL
  7. FOLIC ACID. [Concomitant]
     Active Substance: FOLIC ACID
  8. PRILOSEC [Concomitant]
     Active Substance: OMEPRAZOLE MAGNESIUM
  9. BAYER LOW DOSE [Concomitant]
     Active Substance: ASPIRIN
  10. SYNTHROID [Concomitant]
     Active Substance: LEVOTHYROXINE SODIUM

REACTIONS (4)
  - Ocular hyperaemia [None]
  - Eye irritation [None]
  - Swelling face [None]
  - Vision blurred [None]

NARRATIVE: CASE EVENT DATE: 20161022
